FAERS Safety Report 4806067-0 (Version None)
Quarter: 2005Q4

REPORT INFORMATION
  Report Type: 
  Country: None (occurrence: None)
  Receive Date: 20051019
  Receipt Date: 20051007
  Transmission Date: 20060501
  Serious: Yes (Other)
  Sender: FDA-Public Use
  Company Number: 218172

PATIENT
  Age: 51 Year
  Sex: Female

DRUGS (2)
  1. AVASTIN (BEVACIZUMAB) PWDR + SOLVENT, INFUSION SOLN, 100MG [Suspect]
     Indication: OVARIAN CANCER
     Dates: start: 20050915, end: 20050915
  2. TAXOTEREL (DOCETAXEL) [Concomitant]

REACTIONS (2)
  - GASTROINTESTINAL NEOPLASM [None]
  - GASTROINTESTINAL PERFORATION [None]
